FAERS Safety Report 24956881 (Version 1)
Quarter: 2025Q1

REPORT INFORMATION
  Report Type: Spontaneous
  Country: US (occurrence: US)
  Receive Date: 20250211
  Receipt Date: 20250211
  Transmission Date: 20250409
  Serious: Yes (Hospitalization, Other)
  Sender: ABBVIE
  Company Number: US-ABBVIE-6120765

PATIENT
  Age: 19 Year
  Sex: Male
  Weight: 79.378 kg

DRUGS (8)
  1. HUMIRA [Suspect]
     Active Substance: ADALIMUMAB
     Indication: Crohn^s disease
     Route: 058
     Dates: start: 2015
  2. HUMIRA [Suspect]
     Active Substance: ADALIMUMAB
     Route: 058
     Dates: start: 2015, end: 2015
  3. LAMICTAL [Concomitant]
     Active Substance: LAMOTRIGINE
     Indication: Seizure
     Dosage: FORM STRENGTH: 300 MILLIGRAM
  4. ATIVAN [Concomitant]
     Active Substance: LORAZEPAM
     Indication: Seizure
     Dosage: FORM STRENGTH: 2 MILLIGRAM
  5. MOTEGRITY [Concomitant]
     Active Substance: PRUCALOPRIDE SUCCINATE
     Indication: Product used for unknown indication
  6. AMITIZA [Concomitant]
     Active Substance: LUBIPROSTONE
     Indication: Seizure
  7. VIMPAT [Concomitant]
     Active Substance: LACOSAMIDE
     Indication: Seizure
  8. ONFI [Concomitant]
     Active Substance: CLOBAZAM
     Indication: Product used for unknown indication

REACTIONS (11)
  - Seizure [Not Recovered/Not Resolved]
  - Musculoskeletal disorder [Not Recovered/Not Resolved]
  - Haematochezia [Not Recovered/Not Resolved]
  - Hemiplegia [Not Recovered/Not Resolved]
  - Device issue [Not Recovered/Not Resolved]
  - Feeding disorder [Recovered/Resolved]
  - Gait inability [Recovered/Resolved]
  - Cerebrovascular accident [Not Recovered/Not Resolved]
  - Arterial injury [Unknown]
  - Procedural complication [Unknown]
  - Seizure [Recovered/Resolved]

NARRATIVE: CASE EVENT DATE: 20150101
